FAERS Safety Report 16993453 (Version 1)
Quarter: 2019Q4

REPORT INFORMATION
  Report Type: Spontaneous
  Country: CN (occurrence: CN)
  Receive Date: 20191105
  Receipt Date: 20191105
  Transmission Date: 20200122
  Serious: Yes (Other)
  Sender: FDA-Public Use
  Company Number: CN-PFIZER INC-2019473077

PATIENT
  Age: 11 Month
  Sex: Male
  Weight: 11.5 kg

DRUGS (2)
  1. FUSIDIC ACID [Suspect]
     Active Substance: FUSIDIC ACID
     Indication: ANTI-INFECTIVE THERAPY
     Dosage: UNK
  2. MEROPENEM. [Suspect]
     Active Substance: MEROPENEM
     Indication: ANTI-INFECTIVE THERAPY
     Dosage: UNK

REACTIONS (1)
  - Staphylococcal infection [Unknown]

NARRATIVE: CASE EVENT DATE: 20190930
